FAERS Safety Report 22133991 (Version 1)
Quarter: 2023Q1

REPORT INFORMATION
  Report Type: Report from Study
  Country: CA (occurrence: CA)
  Receive Date: 20230324
  Receipt Date: 20230324
  Transmission Date: 20230418
  Serious: Yes (Hospitalization)
  Sender: FDA-Public Use
  Company Number: CA-ABBVIE-4696769

PATIENT
  Age: 76 Year
  Sex: Male

DRUGS (2)
  1. VENETOCLAX [Suspect]
     Active Substance: VENETOCLAX
     Indication: Acute myeloid leukaemia
     Dosage: DOSE ADMINISTERED 400 MG , DAY (1) 100 MG, DAY (2) 200 MG, DAY (3) 400 MG, DAY (4-14) 400 MG ONCE...
     Route: 048
     Dates: start: 20230103, end: 20230117
  2. VENETOCLAX [Suspect]
     Active Substance: VENETOCLAX
     Indication: Acute myeloid leukaemia
     Route: 048
     Dates: start: 20221121, end: 20221205

REACTIONS (2)
  - Febrile nonhaemolytic transfusion reaction [Recovered/Resolved]
  - Pyrexia [Unknown]

NARRATIVE: CASE EVENT DATE: 20230223
